FAERS Safety Report 7888871-8 (Version None)
Quarter: 2011Q4

REPORT INFORMATION
  Report Type: 
  Country: None (occurrence: None)
  Receive Date: 20111103
  Receipt Date: 20111028
  Transmission Date: 20120403
  Serious: Yes (Hospitalization)
  Sender: FDA-Public Use
  Company Number: US-ABBOTT-11P-163-0870297-00

PATIENT
  Sex: Female
  Weight: 76.3 kg

DRUGS (12)
  1. HUMIRA [Suspect]
     Indication: ANKYLOSING SPONDYLITIS
     Route: 050
     Dates: start: 20100915, end: 20101017
  2. MULTI-VITAMINS [Concomitant]
     Indication: PRODUCT USED FOR UNKNOWN INDICATION
     Route: 048
     Dates: start: 20101001, end: 20110614
  3. DHA [Concomitant]
     Indication: PRODUCT USED FOR UNKNOWN INDICATION
     Dosage: 2 PILLS 3.5 TIMES A WEEK
     Route: 048
     Dates: start: 20101001, end: 20101101
  4. ASPIRIN [Concomitant]
     Indication: PRODUCT USED FOR UNKNOWN INDICATION
     Route: 048
     Dates: start: 20101207, end: 20110311
  5. VITAMIN D [Concomitant]
     Indication: PRODUCT USED FOR UNKNOWN INDICATION
     Route: 048
     Dates: start: 20100915, end: 20110221
  6. TYLENOL-500 [Concomitant]
     Indication: RHEUMATOID ARTHRITIS
     Route: 048
     Dates: start: 20100915, end: 20110614
  7. CALCIUM [Concomitant]
     Dosage: 500MG 1-2 PER WEEK (1.5 X A WEEK)
     Route: 048
     Dates: start: 20101226, end: 20110221
  8. COFFEE [Concomitant]
     Indication: PRODUCT USED FOR UNKNOWN INDICATION
     Dosage: 1/2 TO 3/4 OF A SERVING- 0.63 X 3.5/WEEK
     Route: 048
     Dates: start: 20101001, end: 20110201
  9. FLU VACCINE NOS [Concomitant]
     Indication: ANTIVIRAL PROPHYLAXIS
     Route: 050
     Dates: start: 20101015, end: 20101015
  10. RHOGAM [Concomitant]
     Indication: PRODUCT USED FOR UNKNOWN INDICATION
     Route: 050
     Dates: start: 20110325, end: 20110325
  11. PREDNISONE [Concomitant]
     Indication: CROHN'S DISEASE
     Route: 048
     Dates: start: 20100915, end: 20110614
  12. CALCIUM [Concomitant]
     Indication: PRODUCT USED FOR UNKNOWN INDICATION
     Route: 048
     Dates: start: 20100915, end: 20101225

REACTIONS (3)
  - ROAD TRAFFIC ACCIDENT [None]
  - RESPIRATORY TRACT INFECTION [None]
  - ABDOMINAL PAIN [None]
